FAERS Safety Report 5912761-0 (Version None)
Quarter: 2008Q4

REPORT INFORMATION
  Report Type: 
  Country: None (occurrence: None)
  Receive Date: 20081008
  Receipt Date: 20070912
  Transmission Date: 20090506
  Serious: No
  Sender: FDA-Public Use
  Company Number: US-ABBOTT-07P-163-0417209-00

PATIENT
  Sex: Male
  Weight: 12.9 kg

DRUGS (1)
  1. DEPAKOTE [Suspect]
     Indication: MYOCLONUS
     Route: 048
     Dates: start: 20070706

REACTIONS (5)
  - COUGH [None]
  - MEDICATION RESIDUE [None]
  - MYOCLONIC EPILEPSY [None]
  - NASOPHARYNGITIS [None]
  - RHINORRHOEA [None]
